FAERS Safety Report 8947923 (Version 1)
Quarter: 2012Q4

REPORT INFORMATION
  Report Type: Spontaneous
  Country: US (occurrence: None)
  Receive Date: 20121203
  Receipt Date: 20121203
  Transmission Date: 20130627
  Serious: No
  Sender: FDA-Public Use
  Company Number: None

PATIENT
  Age: 34 Year
  Sex: Female
  Weight: 99.79 kg

DRUGS (2)
  1. INDOMETHACIN [Suspect]
     Dosage: one pill 3xs daily po
     Route: 048
     Dates: start: 20121109, end: 20121119
  2. ATENOLOL [Suspect]
     Dosage: one pill 2 x daily po
     Route: 048
     Dates: start: 20120903, end: 20121122

REACTIONS (10)
  - Rash [None]
  - Lip swelling [None]
  - Nasal oedema [None]
  - Swelling face [None]
  - Oedema peripheral [None]
  - Rash erythematous [None]
  - Rash pruritic [None]
  - Dyspnoea [None]
  - Chest pain [None]
  - Throat irritation [None]
